FAERS Safety Report 6380770-6 (Version None)
Quarter: 2009Q3

REPORT INFORMATION
  Report Type: 
  Country: None (occurrence: None)
  Receive Date: 20090925
  Receipt Date: 20090925
  Transmission Date: 20100115
  Serious: Yes (Other)
  Sender: FDA-Public Use
  Company Number: None

PATIENT
  Age: 37 Year
  Sex: Female
  Weight: 58.0604 kg

DRUGS (2)
  1. LIDODERM 5% PATCH 5% LIDOCAINE ENDO [Suspect]
     Indication: NECK INJURY
     Dosage: 1 PATCH AS NEEDED FOR NECK TRANSDERMAL, EVERY NOW AND THEN AS NEEDED
     Route: 062
     Dates: start: 20070921, end: 20090910
  2. LIDODERM 5% PATCH 5% LIDOCAINE ENDO [Suspect]
     Indication: WHIPLASH INJURY
     Dosage: 1 PATCH AS NEEDED FOR NECK TRANSDERMAL, EVERY NOW AND THEN AS NEEDED
     Route: 062
     Dates: start: 20070921, end: 20090910

REACTIONS (1)
  - DRUG SCREEN FALSE POSITIVE [None]
